FAERS Safety Report 15367118 (Version 1)
Quarter: 2018Q3

REPORT INFORMATION
  Report Type: Spontaneous
  Country: US (occurrence: US)
  Receive Date: 20180910
  Receipt Date: 20180910
  Transmission Date: 20181010
  Serious: No
  Sender: FDA-Public Use
  Company Number: US-ALLERGAN-1831259US

PATIENT
  Sex: Female

DRUGS (2)
  1. CARAFATE [Suspect]
     Active Substance: SUCRALFATE
     Indication: EPIGASTRIC DISCOMFORT
     Dosage: 10 ML, QID
     Route: 048
     Dates: start: 2017
  2. CARAFATE [Suspect]
     Active Substance: SUCRALFATE
     Dosage: 10 ML, QD
     Route: 048
     Dates: start: 20180614, end: 20180614

REACTIONS (5)
  - Heart rate decreased [Not Recovered/Not Resolved]
  - Feeling abnormal [Not Recovered/Not Resolved]
  - Off label use [Unknown]
  - Dysphonia [Not Recovered/Not Resolved]
  - Dyspnoea [Not Recovered/Not Resolved]
